FAERS Safety Report 5393865-0 (Version None)
Quarter: 2007Q3

REPORT INFORMATION
  Report Type: 
  Country: None (occurrence: None)
  Receive Date: 20070723
  Receipt Date: 20070713
  Transmission Date: 20080115
  Serious: Yes (Hospitalization)
  Sender: FDA-Public Use
  Company Number: B0477569A

PATIENT
  Age: 72 Year

DRUGS (10)
  1. SERETIDE [Suspect]
     Indication: ASTHMA
     Dosage: 100MCG TWICE PER DAY
     Route: 055
     Dates: start: 20070615, end: 20070629
  2. THEOLONG [Concomitant]
     Route: 048
  3. AM [Concomitant]
     Route: 048
  4. DIMETHICONE [Concomitant]
     Route: 048
  5. DEPAS [Concomitant]
     Route: 048
  6. OMEPRAZOLE [Concomitant]
     Route: 048
  7. DILTIAZEM HCL [Concomitant]
     Route: 048
  8. MAGMITT [Concomitant]
     Route: 048
  9. ASPIRIN [Concomitant]
     Route: 048
  10. MEPTIN AIR [Concomitant]
     Route: 055

REACTIONS (1)
  - ORAL CANDIDIASIS [None]
